FAERS Safety Report 6679709-5 (Version None)
Quarter: 2010Q2

REPORT INFORMATION
  Report Type: 
  Country: None (occurrence: None)
  Receive Date: 20100409
  Receipt Date: 20090811
  Transmission Date: 20101027
  Serious: No
  Sender: FDA-Public Use
  Company Number: 2009-00481

PATIENT
  Age: 65 Year
  Sex: Female
  Weight: 68.0396 kg

DRUGS (2)
  1. ZICAM COLD REMEDY NASAL GEL [Suspect]
     Dosage: 3-4 DOSES, 3-4 DOSES
     Dates: start: 20081001
  2. CALTRATE [Concomitant]

REACTIONS (1)
  - ANOSMIA [None]
